FAERS Safety Report 6494658-3 (Version None)
Quarter: 2009Q4

REPORT INFORMATION
  Report Type: 
  Country: None (occurrence: None)
  Receive Date: 20091214
  Receipt Date: 20090317
  Transmission Date: 20100525
  Serious: Yes (Other)
  Sender: FDA-Public Use
  Company Number: US-BRISTOL-MYERS SQUIBB COMPANY-14541767

PATIENT
  Age: 35 Year
  Sex: Female

DRUGS (5)
  1. ABILIFY [Suspect]
     Indication: DEPRESSION
     Dosage: STARTED WITH 2MG TABS + INCREASED TO 5MG ON 23DEC09
     Route: 048
     Dates: start: 20081211, end: 20081227
  2. ABILIFY [Suspect]
     Indication: BACK PAIN
     Dosage: STARTED WITH 2MG TABS + INCREASED TO 5MG ON 23DEC09
     Route: 048
     Dates: start: 20081211, end: 20081227
  3. PROZAC [Suspect]
     Dosage: INCREASED TO 60MG
  4. VICODIN [Concomitant]
     Indication: BACK PAIN
  5. SOMA [Concomitant]
     Indication: BACK PAIN

REACTIONS (5)
  - DRUG HYPERSENSITIVITY [None]
  - DYSPNOEA [None]
  - HYPOTONIA [None]
  - NEUROLEPTIC MALIGNANT SYNDROME [None]
  - PRESYNCOPE [None]
